FAERS Safety Report 17437167 (Version 2)
Quarter: 2020Q1

REPORT INFORMATION
  Report Type: Spontaneous
  Country: DE (occurrence: DE)
  Receive Date: 20200219
  Receipt Date: 20200325
  Transmission Date: 20200409
  Serious: Yes (Other)
  Sender: FDA-Public Use
  Company Number: NVSC2020DE045501

PATIENT
  Age: 33 Year
  Sex: Female

DRUGS (1)
  1. SECUKINUMAB. [Suspect]
     Active Substance: SECUKINUMAB
     Indication: PSORIASIS
     Dosage: UNK
     Route: 065

REACTIONS (5)
  - Pyoderma gangrenosum [Recovering/Resolving]
  - Paradoxical drug reaction [Unknown]
  - Nodule [Recovering/Resolving]
  - Ulcer [Recovering/Resolving]
  - Pustule [Recovering/Resolving]
